FAERS Safety Report 6418920-5 (Version None)
Quarter: 2009Q4

REPORT INFORMATION
  Report Type: 
  Country: None (occurrence: None)
  Receive Date: 20091029
  Receipt Date: 20091021
  Transmission Date: 20100525
  Serious: Yes (Other)
  Sender: FDA-Public Use
  Company Number: US-WYE-H11080509

PATIENT
  Sex: Male
  Weight: 73.4 kg

DRUGS (11)
  1. TYGACIL [Suspect]
     Indication: SEPSIS
     Dosage: UNKNOWN
     Route: 065
     Dates: start: 20090823, end: 20090830
  2. TYGACIL [Suspect]
     Indication: DUODENITIS
     Dosage: UNKNOWN
     Route: 013
     Dates: start: 20090831, end: 20090831
  3. ASPIRIN [Concomitant]
     Indication: ANTIPLATELET THERAPY
     Route: 048
     Dates: start: 20090828, end: 20090901
  4. DARBEPOETIN ALFA [Concomitant]
     Indication: ANAEMIA
     Dosage: 60 MCG WEEKLY
     Route: 058
     Dates: start: 20090822, end: 20090901
  5. SIMVASTATIN [Concomitant]
     Route: 048
     Dates: start: 20090829, end: 20090831
  6. FLUCONAZOLE [Concomitant]
     Indication: INFECTION
     Route: 042
     Dates: start: 20090829, end: 20090901
  7. HEPARIN [Concomitant]
     Indication: THROMBOSIS PROPHYLAXIS
     Dosage: 5000 UNIT EVERY 12 HR
     Route: 058
     Dates: start: 20090820, end: 20090901
  8. PANTOPRAZOLE [Concomitant]
     Route: 042
     Dates: start: 20090829, end: 20090901
  9. RIVASTIGMINE TARTRATE [Concomitant]
     Route: 062
     Dates: start: 20090820, end: 20090901
  10. MOXIFLOXACIN HCL [Suspect]
     Indication: SEPSIS
     Route: 013
     Dates: start: 20090823, end: 20090901
  11. LEXAPRO [Concomitant]
     Indication: DEPRESSION
     Route: 048
     Dates: start: 20090820, end: 20090901

REACTIONS (4)
  - CEREBRAL INFARCTION [None]
  - CONVULSION [None]
  - INCORRECT ROUTE OF DRUG ADMINISTRATION [None]
  - MUSCULAR WEAKNESS [None]
